FAERS Safety Report 5320004-4 (Version None)
Quarter: 2007Q2

REPORT INFORMATION
  Report Type: 
  Country: None (occurrence: None)
  Receive Date: 20070503
  Receipt Date: 20070418
  Transmission Date: 20071010
  Serious: Yes (Death)
  Sender: FDA-Public Use
  Company Number: 2007US000877

PATIENT
  Age: 43 Year
  Sex: Male

DRUGS (8)
  1. PROGRAF [Suspect]
     Indication: LUNG TRANSPLANT REJECTION
  2. PREDNISONE TAB [Suspect]
     Indication: LUNG TRANSPLANT REJECTION
  3. AZATHIOPRINE [Suspect]
     Indication: LUNG TRANSPLANT REJECTION
     Dates: end: 19990601
  4. MYCOPHENOLATE MOFETIL [Suspect]
     Indication: LUNG TRANSPLANT REJECTION
     Dates: start: 19990601
  5. METHOTREXATE [Concomitant]
  6. ITRACONAZOLE [Concomitant]
  7. TRIMETOPRIM + SULFAMETOXAZOL (SULFAMETHOXAZOLE, TRIMETHOPRIM) [Concomitant]
  8. ACYCLOVIR [Concomitant]

REACTIONS (13)
  - ARTHRITIS FUNGAL [None]
  - BRONCHOPULMONARY ASPERGILLOSIS [None]
  - CULTURE TISSUE SPECIMEN POSITIVE [None]
  - FUNGAEMIA [None]
  - JOINT ABSCESS [None]
  - MEDIASTINITIS [None]
  - NECROTISING GRANULOMATOUS LYMPHADENITIS [None]
  - NOCARDIOSIS [None]
  - OBLITERATIVE BRONCHIOLITIS [None]
  - OSTEOMYELITIS FUNGAL [None]
  - PLEURISY [None]
  - PNEUMONIA FUNGAL [None]
  - SCEDOSPORIUM INFECTION [None]
